FAERS Safety Report 19725691 (Version 2)
Quarter: 2025Q4

REPORT INFORMATION
  Report Type: Spontaneous
  Country: EU (occurrence: EU)
  Receive Date: 20210820
  Receipt Date: 20251211
  Transmission Date: 20260118
  Serious: Yes (Other)
  Sender: RANBAXY
  Company Number: EU-SUN PHARMACEUTICAL INDUSTRIES LTD-2021RR-308659

PATIENT
  Age: 75 Year
  Sex: Male

DRUGS (24)
  1. LEVOFLOXACIN [Suspect]
     Active Substance: LEVOFLOXACIN
     Indication: Staphylococcal infection
     Dosage: UNK
     Route: 065
  2. LEVOFLOXACIN [Suspect]
     Active Substance: LEVOFLOXACIN
     Indication: Enterobacter infection
  3. MEROPENEM [Suspect]
     Active Substance: MEROPENEM
     Indication: Staphylococcal infection
     Dosage: UNK
     Route: 065
  4. MEROPENEM [Suspect]
     Active Substance: MEROPENEM
     Indication: Enterobacter infection
  5. PIPERACILLIN SODIUM\TAZOBACTAM SODIUM [Suspect]
     Active Substance: PIPERACILLIN SODIUM\TAZOBACTAM SODIUM
     Indication: Staphylococcal infection
     Dosage: UNK
     Route: 065
  6. PIPERACILLIN SODIUM\TAZOBACTAM SODIUM [Suspect]
     Active Substance: PIPERACILLIN SODIUM\TAZOBACTAM SODIUM
     Indication: Enterobacter infection
  7. COTRIMOXAZOLE [Suspect]
     Active Substance: SULFAMETHOXAZOLE\TRIMETHOPRIM
     Indication: Staphylococcal infection
     Dosage: UNK
     Route: 065
  8. COTRIMOXAZOLE [Suspect]
     Active Substance: SULFAMETHOXAZOLE\TRIMETHOPRIM
     Indication: Enterobacter infection
  9. VANCOMYCIN HYDROCHLORIDE [Suspect]
     Active Substance: VANCOMYCIN HYDROCHLORIDE
     Indication: Staphylococcal infection
     Dosage: UNK
     Route: 065
  10. VANCOMYCIN HYDROCHLORIDE [Suspect]
     Active Substance: VANCOMYCIN HYDROCHLORIDE
     Indication: Enterobacter infection
  11. LINEZOLID [Suspect]
     Active Substance: LINEZOLID
     Indication: Staphylococcal infection
     Dosage: UNK
     Route: 065
  12. LINEZOLID [Suspect]
     Active Substance: LINEZOLID
     Indication: Enterobacter infection
  13. ERYTHROMYCIN [Suspect]
     Active Substance: ERYTHROMYCIN
     Indication: Staphylococcal infection
     Dosage: UNK
     Route: 065
  14. ERYTHROMYCIN [Suspect]
     Active Substance: ERYTHROMYCIN
     Indication: Enterobacter infection
  15. IMIPENEM [Suspect]
     Active Substance: IMIPENEM
     Indication: Staphylococcal infection
     Dosage: UNK
     Route: 065
  16. IMIPENEM [Suspect]
     Active Substance: IMIPENEM
     Indication: Enterobacter infection
  17. AVIBACTAM SODIUM\CEFTAZIDIME [Suspect]
     Active Substance: AVIBACTAM SODIUM\CEFTAZIDIME
     Indication: Staphylococcal infection
     Dosage: UNK
     Route: 065
  18. AVIBACTAM SODIUM\CEFTAZIDIME [Suspect]
     Active Substance: AVIBACTAM SODIUM\CEFTAZIDIME
     Indication: Enterobacter infection
  19. AMIKACIN [Suspect]
     Active Substance: AMIKACIN
     Indication: Staphylococcal infection
     Dosage: UNK
     Route: 065
  20. AMIKACIN [Suspect]
     Active Substance: AMIKACIN
     Indication: Enterobacter infection
  21. DAPTOMYCIN [Suspect]
     Active Substance: DAPTOMYCIN
     Indication: Staphylococcal infection
     Dosage: UNK
     Route: 065
  22. DAPTOMYCIN [Suspect]
     Active Substance: DAPTOMYCIN
     Indication: Enterobacter infection
  23. CEFTAROLINE [Suspect]
     Active Substance: CEFTAROLINE
     Indication: Staphylococcal infection
     Dosage: UNK
     Route: 065
  24. CEFTAROLINE [Suspect]
     Active Substance: CEFTAROLINE
     Indication: Enterobacter infection

REACTIONS (1)
  - Drug resistance [Unknown]
